FAERS Safety Report 8926342 (Version 5)
Quarter: 2013Q3

REPORT INFORMATION
  Report Type: Spontaneous
  Country: US (occurrence: US)
  Receive Date: 20121127
  Receipt Date: 20130820
  Transmission Date: 20140515
  Serious: Yes (Hospitalization, Other)
  Sender: FDA-Public Use
  Company Number: US-GLAXOSMITHKLINE-A0998540A

PATIENT
  Age: 37 Year
  Sex: Female
  Weight: 66.8 kg

DRUGS (5)
  1. FLOLAN [Suspect]
     Indication: PULMONARY ARTERIAL HYPERTENSION
     Dosage: 47NGKM CONTINUOUS
     Route: 042
     Dates: start: 20090429
  2. REVATIO [Concomitant]
  3. LASIX [Concomitant]
  4. SPIRONOLACTONE [Concomitant]
  5. ZAROXOLYN [Concomitant]

REACTIONS (12)
  - Dyspnoea [Unknown]
  - Flushing [Recovered/Resolved]
  - Feeling hot [Recovered/Resolved]
  - Abdominal pain upper [Recovered/Resolved]
  - Device infusion issue [Recovered/Resolved]
  - Catheter site haemorrhage [Recovered/Resolved]
  - Device leakage [Recovered/Resolved]
  - Therapy cessation [Recovered/Resolved]
  - Malaise [Recovered/Resolved]
  - Anxiety [Recovered/Resolved]
  - Drug administration error [Recovered/Resolved]
  - Miliaria [Unknown]
